FAERS Safety Report 20207773 (Version 1)
Quarter: 2021Q4

REPORT INFORMATION
  Report Type: Spontaneous
  Country: CA (occurrence: CA)
  Receive Date: 20211220
  Receipt Date: 20211220
  Transmission Date: 20220303
  Serious: Yes (Life-Threatening, Hospitalization)
  Sender: FDA-Public Use
  Company Number: CA-PFIZER INC-202101738865

PATIENT
  Age: 49 Year
  Sex: Male
  Weight: 112 kg

DRUGS (1)
  1. DEPO-TESTOSTERONE [Suspect]
     Active Substance: TESTOSTERONE CYPIONATE
     Indication: Klinefelter^s syndrome
     Dosage: 200 MG, WEEKLY
     Route: 030

REACTIONS (6)
  - Computerised tomogram thorax abnormal [Unknown]
  - Myocardial strain imaging [Unknown]
  - Pulmonary embolism [Unknown]
  - Pulmonary haemorrhage [Unknown]
  - Pulmonary infarction [Unknown]
  - Pulmonary mass [Unknown]
